FAERS Safety Report 7119605-2 (Version None)
Quarter: 2010Q4

REPORT INFORMATION
  Report Type: 
  Country: None (occurrence: None)
  Receive Date: 20101123
  Receipt Date: 20101118
  Transmission Date: 20110411
  Serious: Yes (Other)
  Sender: FDA-Public Use
  Company Number: PR-ABBOTT-10P-131-0686619-00

PATIENT
  Sex: Female

DRUGS (2)
  1. HUMIRA [Suspect]
     Indication: RHEUMATOID ARTHRITIS
     Route: 058
     Dates: start: 20101021, end: 20101118
  2. ZYRTEC [Concomitant]
     Indication: SINUSITIS
     Route: 048

REACTIONS (5)
  - ABDOMINAL PAIN UPPER [None]
  - DYSPNOEA [None]
  - INJECTION SITE PAIN [None]
  - POST PROCEDURAL DIARRHOEA [None]
  - PULMONARY CONGESTION [None]
